FAERS Safety Report 10153724 (Version 2)
Quarter: 2014Q2

REPORT INFORMATION
  Report Type: Report from Study
  Country: DE (occurrence: DE)
  Receive Date: 20140506
  Receipt Date: 20140506
  Transmission Date: 20141212
  Serious: Yes (Other)
  Sender: FDA-Public Use
  Company Number: DE-ROCHE-1376396

PATIENT
  Age: 63 Year
  Sex: Female
  Weight: 70.1 kg

DRUGS (9)
  1. BEVACIZUMAB [Suspect]
     Indication: COLON CANCER
     Dosage: LAST DOSE PRIOR TO SAE  30/JAN/2012
     Route: 042
     Dates: start: 20120130
  2. BEVACIZUMAB [Suspect]
     Indication: RECTAL CANCER
  3. OXALIPLATIN [Suspect]
     Indication: COLON CANCER
     Dosage: LAST DOSE PRIOR TO SAE  30/JAN/2012
     Route: 042
     Dates: start: 20120130
  4. 5-FU [Suspect]
     Indication: COLON CANCER
     Dosage: LAST DOSE PRIOR TO SAE  31/JAN/2012
     Route: 042
     Dates: start: 20120130
  5. FOLINIC ACID [Suspect]
     Indication: COLON CANCER
     Dosage: LAST DOSE PRIOR TO SAE  31/JAN/2012
     Route: 042
     Dates: start: 20120130
  6. L-THYROXINE [Concomitant]
     Route: 065
  7. PANTOZOL (GERMANY) [Concomitant]
     Route: 065
  8. ATENOLOL [Concomitant]
     Route: 065
  9. TAVOR (GERMANY) [Concomitant]
     Route: 065
     Dates: start: 201212

REACTIONS (1)
  - Gamma-glutamyltransferase increased [Not Recovered/Not Resolved]
